FAERS Safety Report 15261440 (Version 1)
Quarter: 2018Q3

REPORT INFORMATION
  Report Type: Spontaneous
  Country: AU (occurrence: AU)
  Receive Date: 20180809
  Receipt Date: 20180809
  Transmission Date: 20181010
  Serious: Yes (Hospitalization)
  Sender: FDA-Public Use
  Company Number: US-ALLERGAN-1838989US

PATIENT
  Age: 69 Year
  Sex: Male

DRUGS (5)
  1. LAXATIVE [Concomitant]
     Active Substance: UNSPECIFIED INGREDIENT
     Indication: CONSTIPATION PROPHYLAXIS
  2. MORPHINE SULFATE UNK [Suspect]
     Active Substance: MORPHINE SULFATE
     Dosage: 30 MG MORPHINE SOLUTION IN ADDITION TO 10 MG EXTENDED?RELEASE
     Route: 048
  3. MORPHINE SULFATE UNK [Suspect]
     Active Substance: MORPHINE SULFATE
     Dosage: 10 MG, QPM WITH IMMEDIATE?RELEASE MORPHINE (2?3 ML 1?MG ML?1 SOLUTION) AS REQUIRED EVERY 4?6 H
     Route: 048
  4. MORPHINE SULFATE UNK [Suspect]
     Active Substance: MORPHINE SULFATE
     Dosage: 5 MG, QHS, WITH IMMEDIATE?RELEASE MORPHINE (2?3 ML 1?MG ML?1 SOLUTION) AS REQUIRED EVERY 4?6 H
     Route: 048
  5. MORPHINE SULFATE UNK [Suspect]
     Active Substance: MORPHINE SULFATE
     Indication: DYSPNOEA
     Dosage: UNK, LONG?ACTING MORPHINE BID
     Route: 048

REACTIONS (5)
  - Incorrect dose administered [Unknown]
  - Confusional state [Unknown]
  - Off label use [Unknown]
  - Respiratory depression [Recovered/Resolved]
  - Somnolence [Unknown]
